FAERS Safety Report 16818278 (Version 1)
Quarter: 2019Q3

REPORT INFORMATION
  Report Type: Spontaneous
  Country: US (occurrence: US)
  Receive Date: 20190917
  Receipt Date: 20190917
  Transmission Date: 20191005
  Serious: No
  Sender: FDA-Public Use
  Company Number: US-JNJFOC-20190919186

PATIENT
  Sex: Male
  Weight: 77.63 kg

DRUGS (9)
  1. CARVEDILOL. [Concomitant]
     Active Substance: CARVEDILOL
  2. PREDNISONE. [Concomitant]
     Active Substance: PREDNISONE
  3. LUPRON [Concomitant]
     Active Substance: LEUPROLIDE ACETATE
  4. LISINOPRIL. [Concomitant]
     Active Substance: LISINOPRIL
  5. PRAVASTATIN. [Concomitant]
     Active Substance: PRAVASTATIN
  6. HYDROCHLOROTHIAZIDE. [Concomitant]
     Active Substance: HYDROCHLOROTHIAZIDE
  7. ZYTIGA [Suspect]
     Active Substance: ABIRATERONE ACETATE
     Indication: PROSTATE CANCER
     Route: 048
  8. BICALUTAMIDE. [Concomitant]
     Active Substance: BICALUTAMIDE
  9. ASPIRIN                            /00002701/ [Concomitant]
     Active Substance: ASPIRIN

REACTIONS (2)
  - Dizziness [Unknown]
  - Constipation [Recovered/Resolved]
